FAERS Safety Report 15833186 (Version 5)
Quarter: 2019Q4

REPORT INFORMATION
  Report Type: Spontaneous
  Country: US (occurrence: US)
  Receive Date: 20190116
  Receipt Date: 20191007
  Transmission Date: 20200122
  Serious: Yes (Other)
  Sender: FDA-Public Use
  Company Number: US-SHIRE-US201901514

PATIENT
  Sex: Male

DRUGS (1)
  1. GATTEX [Suspect]
     Active Substance: TEDUGLUTIDE\WATER
     Indication: PRODUCT USED FOR UNKNOWN INDICATION
     Dosage: 0.3900, 1X/DAY:QD
     Route: 058
     Dates: start: 20181114

REACTIONS (3)
  - Renal disorder [Unknown]
  - Blood creatine increased [Not Recovered/Not Resolved]
  - Urine abnormality [Not Recovered/Not Resolved]
